FAERS Safety Report 9196671 (Version 2)
Quarter: 2013Q4

REPORT INFORMATION
  Report Type: Spontaneous
  Country: TR (occurrence: TR)
  Receive Date: 20130328
  Receipt Date: 20131227
  Transmission Date: 20140711
  Serious: Yes (Other)
  Sender: FDA-Public Use
  Company Number: TR-VERTEX PHARMACEUTICALS INC.-2013-004175

PATIENT
  Age: 77 Year
  Sex: Female
  Weight: 55 kg

DRUGS (5)
  1. INCIVO [Suspect]
     Indication: CHRONIC HEPATITIS C
     Dosage: 750 MG, TID
     Route: 048
     Dates: start: 20130204, end: 2013
  2. INCIVO [Suspect]
     Indication: HEPATITIS C
  3. PEGASYS [Suspect]
     Indication: CHRONIC HEPATITIS C
     Dosage: DOSAGE FORM: UNSPECIFIED
     Route: 065
     Dates: start: 20130204, end: 2013
  4. REBETOL [Suspect]
     Indication: CHRONIC HEPATITIS C
     Dosage: DOSAGE FORM: CAPSULE
     Route: 065
     Dates: start: 20130204
  5. REBETOL [Suspect]
     Dosage: DOSAGE FORM: CAPSULE
     Route: 065
     Dates: end: 2013

REACTIONS (2)
  - Swollen tongue [Recovered/Resolved]
  - Anaemia [Recovered/Resolved]
